FAERS Safety Report 14018720 (Version 14)
Quarter: 2020Q2

REPORT INFORMATION
  Report Type: Spontaneous
  Country: US (occurrence: US)
  Receive Date: 20170928
  Receipt Date: 20200429
  Transmission Date: 20200713
  Serious: No
  Sender: FDA-Public Use
  Company Number: US-PFIZER INC-2017413825

PATIENT
  Age: 60 Year
  Sex: Female
  Weight: 84 kg

DRUGS (12)
  1. CLARITINE [Concomitant]
     Active Substance: LORATADINE
     Dosage: UNK, AS NEEDED
  2. ELELYSO [Suspect]
     Active Substance: TALIGLUCERASE ALFA
     Dosage: 5000 MG, EVERY 14 DAYS
     Route: 042
  3. ELELYSO [Suspect]
     Active Substance: TALIGLUCERASE ALFA
     Indication: GAUCHER^S DISEASE TYPE I
     Dosage: 5000 IU, EVERY 2 WEEKS
     Route: 041
     Dates: start: 20170920
  4. BENADRYL [Concomitant]
     Active Substance: DIPHENHYDRAMINE HYDROCHLORIDE
     Indication: PAIN
     Dosage: 25 MG, 2X/DAY
     Route: 042
     Dates: start: 20180418
  5. ELELYSO [Suspect]
     Active Substance: TALIGLUCERASE ALFA
     Dosage: UNK
     Dates: start: 20180221
  6. CLARITINE [Concomitant]
     Active Substance: LORATADINE
     Indication: PROPHYLAXIS
     Dosage: 10 MG, UNK
     Route: 048
  7. ELELYSO [Suspect]
     Active Substance: TALIGLUCERASE ALFA
     Dosage: UNK, EVERY 2 WEEKS
     Dates: start: 20171004
  8. ELELYSO [Suspect]
     Active Substance: TALIGLUCERASE ALFA
     Dosage: UNK
     Dates: start: 20180404
  9. ELELYSO [Suspect]
     Active Substance: TALIGLUCERASE ALFA
     Dosage: UNK
     Dates: start: 20180321
  10. ELELYSO [Suspect]
     Active Substance: TALIGLUCERASE ALFA
     Dosage: UNK
     Dates: start: 20180418
  11. ELELYSO [Suspect]
     Active Substance: TALIGLUCERASE ALFA
     Dosage: UNK
     Dates: start: 20180503
  12. ADVIL [Concomitant]
     Active Substance: IBUPROFEN
     Indication: INFLAMMATION
     Dosage: UNK, AS NEEDED

REACTIONS (21)
  - Headache [Recovered/Resolved]
  - Pain [Not Recovered/Not Resolved]
  - Nausea [Recovered/Resolved]
  - Back pain [Recovered/Resolved]
  - Blood immunoglobulin A increased [Not Recovered/Not Resolved]
  - Pain in extremity [Recovered/Resolved]
  - Chitotriosidase increased [Not Recovered/Not Resolved]
  - Infusion site pain [Unknown]
  - Platelet count decreased [Not Recovered/Not Resolved]
  - Hunger [Not Recovered/Not Resolved]
  - Weight increased [Unknown]
  - Muscle spasms [Recovered/Resolved]
  - Neck pain [Recovered/Resolved]
  - Heart rate increased [Unknown]
  - Feeling abnormal [Unknown]
  - Drug specific antibody present [Not Recovered/Not Resolved]
  - Malaise [Recovered/Resolved]
  - Arthralgia [Recovered/Resolved]
  - Serum ferritin increased [Unknown]
  - Fatigue [Recovered/Resolved]
  - Musculoskeletal pain [Recovered/Resolved]

NARRATIVE: CASE EVENT DATE: 20171004
